FAERS Safety Report 11341553 (Version 1)
Quarter: 2015Q3

REPORT INFORMATION
  Report Type: Spontaneous
  Country: US (occurrence: None)
  Receive Date: 20150803
  Receipt Date: 20150803
  Transmission Date: 20151125
  Serious: Yes (Other)
  Sender: FDA-Public Use
  Company Number: None

PATIENT
  Age: 45 Year
  Sex: Female
  Weight: 138 kg

DRUGS (6)
  1. LEVOFLOXACIN AUROBINDO PHA [Suspect]
     Active Substance: LEVOFLOXACIN
     Indication: LOWER RESPIRATORY TRACT INFECTION
     Route: 048
     Dates: start: 20150701, end: 20150706
  2. LOZENGE [Concomitant]
     Active Substance: NICOTINE
  3. ARMOUR THYROID [Concomitant]
     Active Substance: THYROID, PORCINE\THYROID, UNSPECIFIED
  4. LEVOFLOXACIN AUROBINDO PHA [Suspect]
     Active Substance: LEVOFLOXACIN
     Indication: PHARYNGITIS
     Route: 048
     Dates: start: 20150701, end: 20150706
  5. VITAMIN B12 [Concomitant]
     Active Substance: CYANOCOBALAMIN
  6. LEVOFLOXACIN AUROBINDO PHA [Suspect]
     Active Substance: LEVOFLOXACIN
     Indication: BACTERIAL INFECTION
     Route: 048
     Dates: start: 20150701, end: 20150706

REACTIONS (4)
  - Rectal haemorrhage [None]
  - Faeces discoloured [None]
  - Melaena [None]
  - Gastrointestinal motility disorder [None]

NARRATIVE: CASE EVENT DATE: 20150705
